FAERS Safety Report 6760801-1 (Version None)
Quarter: 2010Q2

REPORT INFORMATION
  Report Type: 
  Country: None (occurrence: None)
  Receive Date: 20100607
  Receipt Date: 20100607
  Transmission Date: 20101027
  Serious: Yes (Other)
  Sender: FDA-Public Use
  Company Number: None

PATIENT
  Age: 42 Year
  Sex: Male
  Weight: 95.2554 kg

DRUGS (1)
  1. ALLI [Suspect]
     Indication: WEIGHT DECREASED
     Dosage: 1 3 TIME PER DAY PO
     Route: 048
     Dates: start: 20071101, end: 20100603

REACTIONS (1)
  - NEPHROPATHY [None]
